FAERS Safety Report 4555694-7 (Version None)
Quarter: 2005Q1

REPORT INFORMATION
  Report Type: 
  Country: None (occurrence: None)
  Receive Date: 20050111
  Receipt Date: 20041007
  Transmission Date: 20050727
  Serious: No
  Sender: FDA-Public Use
  Company Number: 2004S1000216

PATIENT
  Age: 69 Year
  Sex: Female
  Weight: 86 kg

DRUGS (12)
  1. CUBICIN [Suspect]
     Indication: GRAFT INFECTION
     Dosage: 600 MG;Q24H;IV
     Route: 042
     Dates: start: 20040925, end: 20041005
  2. VANCOMYCIN [Concomitant]
  3. METOPROLOL [Concomitant]
  4. DIGOXIN [Concomitant]
  5. BENICAR [Concomitant]
  6. ENOXAPARIN SODIUM [Concomitant]
  7. PANTOPRAZOLE [Concomitant]
  8. ACETAMINOPHEN [Concomitant]
  9. CLONIDINE [Concomitant]
  10. ALUMINUM HYDROXIDE AND MAGNESIUM TRISILICATE [Concomitant]
  11. LOMOTIL [Concomitant]
  12. MULTI-VITAMIN [Concomitant]

REACTIONS (3)
  - ALDOLASE INCREASED [None]
  - BLOOD CREATINE PHOSPHOKINASE INCREASED [None]
  - MYALGIA [None]
